FAERS Safety Report 9808063 (Version 2)
Quarter: 2014Q1

REPORT INFORMATION
  Report Type: Spontaneous
  Country: US (occurrence: US)
  Receive Date: 20140110
  Receipt Date: 20140127
  Transmission Date: 20141002
  Serious: Yes (Hospitalization, Other)
  Sender: FDA-Public Use
  Company Number: US-009507513-1401USA002362

PATIENT
  Age: 55 Year
  Sex: Male

DRUGS (6)
  1. JANUMET [Suspect]
     Indication: TYPE 2 DIABETES MELLITUS
     Dosage: 50/1000, 1 TABLET IN THE MORNING AND 1 TABLET IN THE EVENING
     Route: 048
  2. SIMCOR (SIMVASTATIN) [Suspect]
  3. GLIMEPIRIDE [Suspect]
  4. NAPROXEN [Concomitant]
  5. TRICOR (ADENOSINE) [Concomitant]
  6. LANTUS [Concomitant]

REACTIONS (3)
  - Adverse event [Not Recovered/Not Resolved]
  - Neck surgery [Unknown]
  - Psychogenic seizure [Not Recovered/Not Resolved]
